FAERS Safety Report 13769477 (Version 1)
Quarter: 2017Q3

REPORT INFORMATION
  Report Type: Spontaneous
  Country: US (occurrence: US)
  Receive Date: 20170719
  Receipt Date: 20170719
  Transmission Date: 20171127
  Serious: No
  Sender: FDA-Public Use
  Company Number: US-BAUSCH-BL-2016-032416

PATIENT
  Age: 34 Year
  Sex: Male
  Weight: 68.55 kg

DRUGS (3)
  1. XIFAXAN [Suspect]
     Active Substance: RIFAXIMIN
     Indication: DIARRHOEA INFECTIOUS
     Route: 048
     Dates: start: 201612
  2. XIFAXAN [Suspect]
     Active Substance: RIFAXIMIN
     Dosage: ONE TABLET
     Route: 048
     Dates: start: 201612
  3. XIFAXAN [Suspect]
     Active Substance: RIFAXIMIN
     Indication: IRRITABLE BOWEL SYNDROME
     Route: 048
     Dates: start: 2016

REACTIONS (5)
  - Tremor [Not Recovered/Not Resolved]
  - Dizziness [Not Recovered/Not Resolved]
  - Diarrhoea [Not Recovered/Not Resolved]
  - Heart rate increased [Not Recovered/Not Resolved]
  - Treatment noncompliance [Unknown]
